FAERS Safety Report 5699365-2 (Version None)
Quarter: 2008Q2

REPORT INFORMATION
  Report Type: 
  Country: None (occurrence: None)
  Receive Date: 20080404
  Receipt Date: 20080320
  Transmission Date: 20081010
  Serious: No
  Sender: FDA-Public Use
  Company Number: TPH-00026

PATIENT
  Age: 24 Year
  Sex: Female

DRUGS (1)
  1. TRIKVILAR [Suspect]
     Indication: CONTRACEPTION
     Dosage: 1 DF, ORAL
     Route: 048

REACTIONS (2)
  - OVARIAN HAEMORRHAGE [None]
  - POOR QUALITY DRUG ADMINISTERED [None]
